FAERS Safety Report 7306154-1 (Version None)
Quarter: 2011Q1

REPORT INFORMATION
  Report Type: 
  Country: None (occurrence: None)
  Receive Date: 20110222
  Receipt Date: 20110216
  Transmission Date: 20110831
  Serious: Yes (Life-Threatening, Hospitalization)
  Sender: FDA-Public Use
  Company Number: GB-ABBOTT-11P-167-0705834-00

PATIENT
  Age: 79 Year
  Sex: Female
  Weight: 60 kg

DRUGS (17)
  1. GLICLAZIDE [Concomitant]
     Indication: TYPE 2 DIABETES MELLITUS
     Route: 048
  2. PREDNISOLONE [Concomitant]
     Indication: CHRONIC OBSTRUCTIVE PULMONARY DISEASE
     Route: 048
  3. LANSOPRAZOLE [Concomitant]
     Indication: PRODUCT USED FOR UNKNOWN INDICATION
     Dosage: TAKEN IN THE MORNING
     Route: 048
  4. WARFARIN [Concomitant]
     Indication: ATRIAL FIBRILLATION
     Dosage: 3 MG WED; 2 MG ALL OTHER DAYS
     Route: 048
  5. FUROSEMIDE [Concomitant]
     Indication: HYPERTENSION
     Dosage: TAKEN IN THE MORNING
     Route: 048
  6. AMLODIPINE [Concomitant]
     Indication: HYPERTENSION
     Dosage: TAKEN IN THE MORNING
     Route: 048
  7. NITROGLYCERIN [Concomitant]
     Indication: ANGINA PECTORIS
     Route: 060
  8. BISOPROLOL [Concomitant]
     Route: 048
     Dates: end: 20110121
  9. ALBUTEROL [Concomitant]
     Indication: CHRONIC OBSTRUCTIVE PULMONARY DISEASE
     Dosage: METERED-DOSE INHALER.
     Route: 055
  10. IPRATROPIUM BROMIDE [Concomitant]
     Indication: CHRONIC OBSTRUCTIVE PULMONARY DISEASE
     Dosage: METERED-DOSE INHALER
     Route: 055
  11. DOXYCYCLINE [Concomitant]
     Indication: CHRONIC OBSTRUCTIVE PULMONARY DISEASE
     Route: 048
     Dates: start: 20110105, end: 20110107
  12. CLARITHROMYCIN TABLETS [Suspect]
     Indication: LOWER RESPIRATORY TRACT INFECTION
     Route: 048
     Dates: start: 20110113
  13. TRIMETHOPRIM [Suspect]
     Indication: LOWER RESPIRATORY TRACT INFECTION
     Route: 048
     Dates: start: 20110107, end: 20110113
  14. BISOPROLOL [Concomitant]
     Indication: ACUTE CORONARY SYNDROME
     Dosage: TAKEN IN THE MORNING
     Route: 048
     Dates: start: 20110121
  15. DIGOXIN [Suspect]
     Indication: ATRIAL FIBRILLATION
     Route: 048
  16. ATORVASTATIN [Concomitant]
     Indication: HYPERLIPIDAEMIA
     Dosage: TAKEN AT NIGH
     Route: 048
  17. SERETIDE [Concomitant]
     Indication: CHRONIC OBSTRUCTIVE PULMONARY DISEASE
     Dosage: 500 ACCUHALER
     Route: 055

REACTIONS (14)
  - MALAISE [None]
  - HYPOTHERMIA [None]
  - ATRIAL FIBRILLATION [None]
  - TOXICITY TO VARIOUS AGENTS [None]
  - DIARRHOEA [None]
  - UNRESPONSIVE TO STIMULI [None]
  - BRADYCARDIA [None]
  - DRUG INTERACTION [None]
  - CONFUSIONAL STATE [None]
  - DECREASED APPETITE [None]
  - DYSPNOEA [None]
  - HYPERSENSITIVITY [None]
  - DRUG HYPERSENSITIVITY [None]
  - RASH [None]
